FAERS Safety Report 8311187-2 (Version None)
Quarter: 2012Q2

REPORT INFORMATION
  Report Type: 
  Country: None (occurrence: None)
  Receive Date: 20120425
  Receipt Date: 20110616
  Transmission Date: 20120825
  Serious: No
  Sender: FDA-Public Use
  Company Number: US-MYLANLABS-2011S1012676

PATIENT
  Age: 76 Year
  Sex: Female
  Weight: 52.16 kg

DRUGS (1)
  1. NITROFURANTOIN MONOHYDRATE/MACROCRYSTALS [Suspect]
     Indication: URINARY TRACT INFECTION
     Route: 048
     Dates: start: 20110602, end: 20110609

REACTIONS (3)
  - BLOOD URINE PRESENT [None]
  - RED BLOOD CELLS URINE [None]
  - DYSURIA [None]
